FAERS Safety Report 11785568 (Version 1)
Quarter: 2015Q4

REPORT INFORMATION
  Report Type: Spontaneous
  Country: GB (occurrence: GB)
  Receive Date: 20151130
  Receipt Date: 20151130
  Transmission Date: 20160305
  Serious: Yes (Other)
  Sender: FDA-Public Use
  Company Number: GB-ASTELLAS-2015US043443

PATIENT
  Age: 88 Year
  Sex: Male

DRUGS (1)
  1. VESICARE [Suspect]
     Active Substance: SOLIFENACIN SUCCINATE
     Indication: PRODUCT USED FOR UNKNOWN INDICATION
     Route: 065

REACTIONS (10)
  - Mobility decreased [Unknown]
  - Stoma complication [Unknown]
  - Fall [Unknown]
  - Decreased appetite [Unknown]
  - Contusion [Unknown]
  - Dry mouth [Unknown]
  - Muscular weakness [Unknown]
  - Bladder disorder [Unknown]
  - Dizziness [Unknown]
  - Constipation [Unknown]

NARRATIVE: CASE EVENT DATE: 20151023
